FAERS Safety Report 11794798 (Version 1)
Quarter: 2015Q4

REPORT INFORMATION
  Report Type: Spontaneous
  Country: US (occurrence: US)
  Receive Date: 20151202
  Receipt Date: 20151202
  Transmission Date: 20160305
  Serious: No
  Sender: FDA-Public Use
  Company Number: US-ASTRAZENECA-2015SF12317

PATIENT
  Sex: Female
  Weight: 61.2 kg

DRUGS (1)
  1. SYMBICORT [Suspect]
     Active Substance: BUDESONIDE\FORMOTEROL FUMARATE DIHYDRATE
     Indication: CHRONIC OBSTRUCTIVE PULMONARY DISEASE
     Dosage: 160MCG/4.5MCG, 2 PUFFS TWICE DAILY
     Route: 055
     Dates: start: 20151103

REACTIONS (10)
  - Dry mouth [Unknown]
  - Device difficult to use [Unknown]
  - Drug dose omission [Unknown]
  - Malaise [Unknown]
  - Device malfunction [Unknown]
  - Infection [Unknown]
  - Chest pain [Unknown]
  - Coordination abnormal [Unknown]
  - Extra dose administered [Unknown]
  - Intentional product misuse [Unknown]
